FAERS Safety Report 10423778 (Version 2)
Quarter: 2014Q3

REPORT INFORMATION
  Report Type: Spontaneous
  Country: US (occurrence: US)
  Receive Date: 20140902
  Receipt Date: 20140926
  Transmission Date: 20150326
  Serious: Yes (Other)
  Sender: FDA-Public Use
  Company Number: US-TEVA-505966USA

PATIENT
  Age: 32 Year
  Sex: Female
  Weight: 84.44 kg

DRUGS (1)
  1. PARAGARD T380A [Suspect]
     Active Substance: COPPER
     Indication: POST COITAL CONTRACEPTION
     Route: 015
     Dates: start: 20140609, end: 20140819

REACTIONS (5)
  - Device dislocation [Recovered/Resolved]
  - Infection [Unknown]
  - Menstruation irregular [Unknown]
  - Pelvic pain [Unknown]
  - Vaginal haemorrhage [Unknown]

NARRATIVE: CASE EVENT DATE: 201408
